FAERS Safety Report 5278009-8 (Version None)
Quarter: 2007Q1

REPORT INFORMATION
  Report Type: 
  Country: None (occurrence: None)
  Receive Date: 20070321
  Receipt Date: 20070305
  Transmission Date: 20070707
  Serious: Yes (Life-Threatening)
  Sender: FDA-Public Use
  Company Number: 8022319

PATIENT
  Age: 59 Year
  Sex: Female

DRUGS (5)
  1. KEPPRA [Suspect]
     Indication: EPILEPSY
     Dosage: 500 MG /D PO
     Route: 048
     Dates: start: 20061215, end: 20061201
  2. KEPPRA [Suspect]
     Indication: EPILEPSY
     Dosage: 500 MG 2/D PO
     Route: 048
     Dates: start: 20061201, end: 20061201
  3. KEPPRA [Suspect]
     Indication: EPILEPSY
     Dosage: 1500 MG PO
     Route: 048
     Dates: start: 20061201, end: 20070101
  4. KEPPRA [Suspect]
     Indication: EPILEPSY
     Dosage: 1000 MG 2/D PO
     Route: 048
     Dates: start: 20070101, end: 20070215
  5. TEGRETOL [Concomitant]

REACTIONS (1)
  - BONE MARROW FAILURE [None]
